FAERS Safety Report 5878167-8 (Version None)
Quarter: 2008Q3

REPORT INFORMATION
  Report Type: 
  Country: None (occurrence: None)
  Receive Date: 20080911
  Receipt Date: 20080911
  Transmission Date: 20090109
  Serious: Yes (Hospitalization)
  Sender: FDA-Public Use
  Company Number: CZ-ABBOTT-08P-217-0469243-00

PATIENT
  Sex: Female

DRUGS (2)
  1. KLACID [Suspect]
     Indication: SINUSITIS
     Route: 048
     Dates: start: 20080312, end: 20080314
  2. KLACID [Suspect]
     Indication: PYREXIA

REACTIONS (4)
  - DERMATITIS ALLERGIC [None]
  - EYELID OEDEMA [None]
  - PRURITUS [None]
  - RASH MACULO-PAPULAR [None]
